FAERS Safety Report 8011672-7 (Version None)
Quarter: 2011Q4

REPORT INFORMATION
  Report Type: 
  Country: None (occurrence: None)
  Receive Date: 20111228
  Receipt Date: 20111219
  Transmission Date: 20120403
  Serious: Yes (Other)
  Sender: FDA-Public Use
  Company Number: US-BAYER-2011-076603

PATIENT
  Sex: Female
  Weight: 136.5 kg

DRUGS (5)
  1. YAZ [Suspect]
     Indication: CONTRACEPTION
     Dosage: UNK
     Dates: start: 20090901, end: 20100101
  2. YAZ [Suspect]
     Indication: PREMENSTRUAL SYNDROME
  3. PREVACID [Concomitant]
     Dosage: 30 MG, QD
  4. TOPAMAX [Concomitant]
     Dosage: 200 MG, BID
  5. REGLAN [Concomitant]
     Dosage: 10 MG, TID

REACTIONS (9)
  - EMOTIONAL DISTRESS [None]
  - PAIN IN EXTREMITY [None]
  - DYSPNOEA [None]
  - PSYCHOLOGICAL TRAUMA [None]
  - PULMONARY EMBOLISM [None]
  - DEEP VEIN THROMBOSIS [None]
  - FEAR [None]
  - INJURY [None]
  - ANXIETY [None]
